FAERS Safety Report 6974243-7 (Version None)
Quarter: 2010Q3

REPORT INFORMATION
  Report Type: 
  Country: None (occurrence: None)
  Receive Date: 20100909
  Receipt Date: 20080701
  Transmission Date: 20110219
  Serious: No
  Sender: FDA-Public Use
  Company Number: US-WYE-H04121808

PATIENT
  Sex: Female
  Weight: 61.29 kg

DRUGS (3)
  1. PROTONIX [Suspect]
     Indication: GASTROOESOPHAGEAL REFLUX DISEASE
     Route: 048
     Dates: start: 20080101, end: 20080501
  2. PROTONIX [Suspect]
     Route: 048
     Dates: start: 20080501
  3. ALENDRONATE SODIUM [Concomitant]

REACTIONS (2)
  - BURNING SENSATION [None]
  - RASH [None]
